FAERS Safety Report 5632283-4 (Version None)
Quarter: 2008Q1

REPORT INFORMATION
  Report Type: 
  Country: None (occurrence: None)
  Receive Date: 20080220
  Receipt Date: 20080212
  Transmission Date: 20080703
  Serious: Yes (Death)
  Sender: FDA-Public Use
  Company Number: US-PURDUE-USA_2008_0031565

PATIENT
  Age: 55 Year
  Sex: Male
  Weight: 68 kg

DRUGS (3)
  1. DILAUDID-HP [Suspect]
     Indication: CANCER PAIN
     Dosage: 50 MG, Q1H
     Route: 042
     Dates: start: 20071023
  2. SYNTHROID [Concomitant]
     Indication: HYPOTHYROIDISM
     Dosage: 250 MCG, DAILY
  3. RITALIN [Concomitant]
     Indication: PAIN
     Dosage: 15 MG, BID

REACTIONS (1)
  - MALIGNANT NEOPLASM PROGRESSION [None]
